FAERS Safety Report 8321889-X (Version None)
Quarter: 2012Q2

REPORT INFORMATION
  Report Type: 
  Country: None (occurrence: None)
  Receive Date: 20120430
  Receipt Date: 20120401
  Transmission Date: 20120825
  Serious: Yes (Hospitalization)
  Sender: FDA-Public Use
  Company Number: CN-GLAXOSMITHKLINE-Z0014926A

PATIENT
  Sex: Male
  Weight: 67 kg

DRUGS (6)
  1. AMLODIPINE [Concomitant]
  2. UNKNOWN MEDICATION [Concomitant]
  3. ALMAGATE [Concomitant]
  4. ALUMINUM HYDROXIDE AND MAGNESIUM TRISILICATE [Concomitant]
  5. SILIBININ [Concomitant]
  6. VOTRIENT [Suspect]
     Indication: RENAL CELL CARCINOMA
     Dosage: 800MG PER DAY
     Route: 048
     Dates: start: 20110517

REACTIONS (2)
  - LOWER GASTROINTESTINAL HAEMORRHAGE [None]
  - DUODENAL ULCER [None]
